FAERS Safety Report 9806489 (Version 1)
Quarter: 2014Q1

REPORT INFORMATION
  Report Type: Spontaneous
  Country: BE (occurrence: BE)
  Receive Date: 20140109
  Receipt Date: 20140109
  Transmission Date: 20141002
  Serious: Yes (Other)
  Sender: FDA-Public Use
  Company Number: BE-BAYER-2014-003266

PATIENT
  Sex: Male

DRUGS (7)
  1. AVELOX [Suspect]
     Indication: CHRONIC OBSTRUCTIVE PULMONARY DISEASE
  2. ASAFLOW [Concomitant]
     Indication: INFARCTION
  3. PANTOPRAZOLE [Concomitant]
  4. TRAZODONE [Concomitant]
  5. GLYCOPYRONIUM [Concomitant]
     Indication: RESPIRATORY DISORDER
  6. SPIRIVA [Concomitant]
     Indication: RESPIRATORY DISORDER
  7. CORUNO [Concomitant]

REACTIONS (2)
  - Pancreatitis [None]
  - Abdominal discomfort [None]
